FAERS Safety Report 26153082 (Version 1)
Quarter: 2025Q4

REPORT INFORMATION
  Report Type: Spontaneous
  Country: US (occurrence: US)
  Receive Date: 20251214
  Receipt Date: 20251214
  Transmission Date: 20260117
  Serious: Yes (Other)
  Sender: BRISTOL-MYERS SQUIBB COMPANY
  Company Number: US-BRISTOL-MYERS SQUIBB COMPANY-2025-167211

PATIENT
  Age: 68 Year
  Sex: Female

DRUGS (2)
  1. POMALYST [Suspect]
     Active Substance: POMALIDOMIDE
     Indication: Plasma cell myeloma
     Dosage: QD FOR 21 DAYS ON, 7 OFF
     Route: 048
  2. POMALYST [Suspect]
     Active Substance: POMALIDOMIDE

REACTIONS (4)
  - Nausea [Unknown]
  - Intervertebral disc disorder [Unknown]
  - Gait inability [Unknown]
  - Appendix disorder [Unknown]
